FAERS Safety Report 16041574 (Version 5)
Quarter: 2019Q3

REPORT INFORMATION
  Report Type: Spontaneous
  Country: US (occurrence: US)
  Receive Date: 20190306
  Receipt Date: 20190711
  Transmission Date: 20191004
  Serious: Yes (Other)
  Sender: FDA-Public Use
  Company Number: US-PFIZER INC-2018498309

PATIENT
  Age: 53 Year
  Sex: Male
  Weight: 111 kg

DRUGS (5)
  1. LYRICA [Suspect]
     Active Substance: PREGABALIN
     Dosage: 600 MG, 2X/DAY (300 MG ( 2 CAPSULES TWICE A DAY)
     Route: 048
  2. LYRICA [Suspect]
     Active Substance: PREGABALIN
     Indication: CHRONIC INFLAMMATORY DEMYELINATING POLYRADICULONEUROPATHY
     Dosage: 300 MG, 3X/DAY
     Route: 048
     Dates: start: 2004
  3. LYRICA [Suspect]
     Active Substance: PREGABALIN
     Dosage: UNK, 4X/DAY
     Route: 048
  4. LYRICA [Suspect]
     Active Substance: PREGABALIN
     Dosage: 600 MG, 2X/DAY [TAKE 2 CAPSULE ORALLY TWICE A DAY]
     Route: 048
     Dates: start: 20190702
  5. LYRICA [Suspect]
     Active Substance: PREGABALIN
     Dosage: 300 MG, 2X/DAY (2 CAPSULES A DAY)
     Route: 048

REACTIONS (6)
  - Off label use [Unknown]
  - Intentional product use issue [Unknown]
  - Prescribed overdose [Unknown]
  - Drug dependence [Unknown]
  - Product dose omission [Unknown]
  - Pain in extremity [Unknown]

NARRATIVE: CASE EVENT DATE: 201901
